FAERS Safety Report 20354967 (Version 1)
Quarter: 2022Q1

REPORT INFORMATION
  Report Type: Spontaneous
  Country: US (occurrence: None)
  Receive Date: 20220119
  Receipt Date: 20220119
  Transmission Date: 20220424
  Serious: No
  Sender: FDA-Public Use
  Company Number: None

PATIENT
  Age: 68 Year
  Sex: Female

DRUGS (1)
  1. BOTOX [Suspect]
     Active Substance: ONABOTULINUMTOXINA
     Dosage: OTHER FREQUENCY : OTHER;?
     Route: 030
     Dates: start: 20210811

REACTIONS (4)
  - Ophthalmic migraine [None]
  - Pain [None]
  - Dizziness [None]
  - Musculoskeletal stiffness [None]

NARRATIVE: CASE EVENT DATE: 20211025
